FAERS Safety Report 6785243-4 (Version None)
Quarter: 2010Q2

REPORT INFORMATION
  Report Type: 
  Country: None (occurrence: None)
  Receive Date: 20100622
  Receipt Date: 20100622
  Transmission Date: 20101027
  Serious: No
  Sender: FDA-Public Use
  Company Number: None

PATIENT
  Sex: Female
  Weight: 82.5547 kg

DRUGS (1)
  1. REMICADE [Suspect]
     Indication: PSORIASIS
     Dosage: 700MG Q8WK IV DRIP
     Route: 041
     Dates: start: 20070222, end: 20100526

REACTIONS (1)
  - DRUG EXPOSURE DURING PREGNANCY [None]
